FAERS Safety Report 23942819 (Version 2)
Quarter: 2024Q2

REPORT INFORMATION
  Report Type: Spontaneous
  Country: US (occurrence: US)
  Receive Date: 20240605
  Receipt Date: 20240614
  Transmission Date: 20240716
  Serious: Yes (Hospitalization, Other)
  Sender: FDA-Public Use
  Company Number: US-BRISTOL-MYERS SQUIBB COMPANY-2024-090486

PATIENT
  Age: 70 Year
  Sex: Male
  Weight: 97.52 kg

DRUGS (1)
  1. REVLIMID [Suspect]
     Active Substance: LENALIDOMIDE
     Indication: Plasma cell myeloma
     Dosage: DOSE : 15 MG; FREQUENCY : 15 MG CAPSULE, 1 CAPSULE FOR 14 DAYS ON 7 DAYS OFF
     Route: 048
     Dates: start: 20240220

REACTIONS (4)
  - Localised infection [Unknown]
  - Off label use [Unknown]
  - Foot fracture [Unknown]
  - Nephrolithiasis [Unknown]
